FAERS Safety Report 4888397-X (Version None)
Quarter: 2005Q4

REPORT INFORMATION
  Report Type: 
  Country: None (occurrence: None)
  Receive Date: 20051221
  Receipt Date: 20051109
  Transmission Date: 20060501
  Serious: No
  Sender: FDA-Public Use
  Company Number: US-YAMANOUCHI-YPA20050581

PATIENT
  Sex: Female

DRUGS (2)
  1. VESICARE [Suspect]
     Dosage: 5 MG QD PO
     Route: 048
     Dates: start: 20050101, end: 20050101
  2. VESICARE [Suspect]
     Dosage: 5 MG BID PO
     Route: 048
     Dates: start: 20050101, end: 20050101

REACTIONS (2)
  - BACK PAIN [None]
  - INCORRECT DOSE ADMINISTERED [None]
